FAERS Safety Report 19588401 (Version 2)
Quarter: 2021Q3

REPORT INFORMATION
  Report Type: Report from Study
  Country: JP (occurrence: JP)
  Receive Date: 20210721
  Receipt Date: 20210819
  Transmission Date: 20211014
  Serious: Yes (Hospitalization, Other)
  Sender: FDA-Public Use
  Company Number: JP-ALXN-A202107890AA

PATIENT
  Age: 17 Year
  Sex: Male

DRUGS (1)
  1. ULTOMIRIS [Suspect]
     Active Substance: RAVULIZUMAB-CWVZ
     Indication: ATYPICAL HAEMOLYTIC URAEMIC SYNDROME
     Dosage: 3300 MG, Q56
     Route: 042
     Dates: start: 202010

REACTIONS (2)
  - Gastroenteritis salmonella [Recovered/Resolved]
  - Salmonella bacteraemia [Recovered/Resolved]

NARRATIVE: CASE EVENT DATE: 20210712
